FAERS Safety Report 9230418 (Version 1)
Quarter: 2013Q2

REPORT INFORMATION
  Report Type: Spontaneous
  Country: FR (occurrence: None)
  Receive Date: 20130411
  Receipt Date: 20130411
  Transmission Date: 20140414
  Serious: Yes (Hospitalization)
  Sender: FDA-Public Use
  Company Number: DSM-2013-00382

PATIENT
  Age: 51 Year
  Sex: Female

DRUGS (5)
  1. OLMETEC (OLMESARTAN MEDOXOMIL) (TABLET) (OLMESARTAN MEDOXOMIL) [Suspect]
     Indication: HYPERTENSION
     Route: 048
     Dates: end: 20130110
  2. XAGRID [Suspect]
     Indication: ESSENTIAL THROMBOCYTHAEMIA
     Route: 048
     Dates: start: 2003, end: 20130110
  3. SPIRONOLACTONE [Suspect]
     Indication: PRODUCT USED FOR UNKNOWN INDICATION
     Route: 048
     Dates: end: 20130110
  4. KARDEGIC (ACETYLSALICYLIC ACID, ACETYLSALICYLATE LYSINE) (ACETYLSALICYLIC ACID, ACETYLSALICYLATE LYSINE) [Concomitant]
  5. ATENOLOL (ATENOLOL) (ATENOLOL) [Concomitant]

REACTIONS (9)
  - Renal failure acute [None]
  - Bradycardia [None]
  - Hyperkalaemia [None]
  - Gastritis [None]
  - Sinoatrial block [None]
  - Headache [None]
  - Asthenia [None]
  - Vertigo [None]
  - Chest pain [None]
